FAERS Safety Report 18777803 (Version 5)
Quarter: 2021Q4

REPORT INFORMATION
  Report Type: Spontaneous
  Country: US (occurrence: US)
  Receive Date: 20210122
  Receipt Date: 20211217
  Transmission Date: 20220304
  Serious: Yes (Other)
  Sender: FDA-Public Use
  Company Number: US-SEATTLE GENETICS-2020SGN03640

PATIENT
  Age: 64 Year
  Sex: Female

DRUGS (10)
  1. TUKYSA [Suspect]
     Active Substance: TUCATINIB
     Indication: Breast cancer female
     Dosage: UNK, BID
     Route: 048
  2. TUKYSA [Suspect]
     Active Substance: TUCATINIB
     Dosage: UNK
     Route: 065
  3. TUKYSA [Suspect]
     Active Substance: TUCATINIB
     Dosage: UNK
     Route: 065
  4. TUKYSA [Suspect]
     Active Substance: TUCATINIB
     Dosage: UNK
     Route: 065
  5. TUKYSA [Suspect]
     Active Substance: TUCATINIB
     Dosage: UNK
     Route: 065
  6. TUKYSA [Suspect]
     Active Substance: TUCATINIB
     Dosage: UNK
     Route: 065
  7. TUKYSA [Suspect]
     Active Substance: TUCATINIB
     Dosage: 250 MG, BID
     Route: 065
  8. TUKYSA [Suspect]
     Active Substance: TUCATINIB
     Dosage: 250 MG, BID
     Route: 065
  9. XELODA [Suspect]
     Active Substance: CAPECITABINE
     Indication: Breast cancer female
     Dosage: 1500 MG, BID
     Route: 065
  10. HERCEPTIN [Concomitant]
     Active Substance: TRASTUZUMAB

REACTIONS (27)
  - Lung neoplasm [Unknown]
  - Unevaluable event [Unknown]
  - Taste disorder [Unknown]
  - Acne [Unknown]
  - Asthenia [Unknown]
  - Dry skin [Unknown]
  - Gastric dilatation [Unknown]
  - Mobility decreased [Unknown]
  - Urinary tract infection [Unknown]
  - Weight increased [Unknown]
  - Abdominal distension [Unknown]
  - Gingival bleeding [Unknown]
  - Pain in extremity [Unknown]
  - Cognitive disorder [Unknown]
  - Dizziness [Unknown]
  - Confusional state [Unknown]
  - Fall [Unknown]
  - Ingrowing nail [Not Recovered/Not Resolved]
  - Nail operation [Unknown]
  - Platelet count decreased [Unknown]
  - Headache [Unknown]
  - Fatigue [Unknown]
  - Palmar-plantar erythrodysaesthesia syndrome [Recovering/Resolving]
  - Skin exfoliation [Unknown]
  - Arthralgia [Unknown]
  - Erythema [Not Recovered/Not Resolved]
  - Nausea [Unknown]

NARRATIVE: CASE EVENT DATE: 20211209
